FAERS Safety Report 19241636 (Version 1)
Quarter: 2021Q2

REPORT INFORMATION
  Report Type: Spontaneous
  Country: US (occurrence: US)
  Receive Date: 20210511
  Receipt Date: 20210511
  Transmission Date: 20210717
  Serious: No
  Sender: FDA-Public Use
  Company Number: US-TEVA-2021-US-1908421

PATIENT
  Sex: Female

DRUGS (1)
  1. PROAIR HFA [Suspect]
     Active Substance: ALBUTEROL SULFATE
     Indication: ASTHMA
     Dosage: PROAIR HFA 90MCG INHALER,  2 INHALATION MORNING AND NIGHT
     Route: 055
     Dates: start: 2014

REACTIONS (5)
  - Product odour abnormal [Recovered/Resolved]
  - Dizziness [Unknown]
  - Headache [Unknown]
  - Pharyngeal swelling [Recovered/Resolved]
  - Product taste abnormal [Unknown]
